FAERS Safety Report 5619223-9 (Version None)
Quarter: 2008Q1

REPORT INFORMATION
  Report Type: 
  Country: None (occurrence: None)
  Receive Date: 20080205
  Receipt Date: 20080125
  Transmission Date: 20080703
  Serious: Yes (Other)
  Sender: FDA-Public Use
  Company Number: 2008BI002149

PATIENT
  Sex: Female

DRUGS (1)
  1. AVONEX [Suspect]
     Indication: DRUG USE FOR UNKNOWN INDICATION
     Dosage: IM
     Route: 030
     Dates: start: 20071201

REACTIONS (12)
  - ASTHENIA [None]
  - BILIARY TRACT DISORDER [None]
  - CRYING [None]
  - EMOTIONAL DISORDER [None]
  - HAEMORRHAGE [None]
  - HYPOACUSIS [None]
  - INFLUENZA [None]
  - LIVER DISORDER [None]
  - MASS [None]
  - MULTIPLE SCLEROSIS RELAPSE [None]
  - MUSCLE SPASTICITY [None]
  - RENAL DISORDER [None]
